FAERS Safety Report 21711026 (Version 1)
Quarter: 2022Q4

REPORT INFORMATION
  Report Type: Spontaneous
  Country: JP (occurrence: JP)
  Receive Date: 20221212
  Receipt Date: 20221212
  Transmission Date: 20230113
  Serious: Yes (Hospitalization)
  Sender: FDA-Public Use
  Company Number: JP-NOVOPROD-982557

PATIENT
  Age: 20 Year
  Sex: Male
  Weight: 45 kg

DRUGS (2)
  1. NOVORAPID [Suspect]
     Active Substance: INSULIN ASPART
     Indication: Type 1 diabetes mellitus
     Dosage: 10 IU, QD
     Route: 058
     Dates: start: 201505
  2. INSULIN GLARGINE [Concomitant]
     Active Substance: INSULIN GLARGINE
     Indication: Type 1 diabetes mellitus
     Dosage: 5 IU, QD
     Route: 058
     Dates: start: 201505

REACTIONS (3)
  - Diabetic hepatopathy [Recovering/Resolving]
  - Diabetes mellitus inadequate control [Unknown]
  - Treatment noncompliance [Unknown]

NARRATIVE: CASE EVENT DATE: 20200801
